FAERS Safety Report 20834528 (Version 3)
Quarter: 2022Q3

REPORT INFORMATION
  Report Type: Spontaneous
  Country: JP (occurrence: JP)
  Receive Date: 20220516
  Receipt Date: 20220708
  Transmission Date: 20221027
  Serious: Yes (Hospitalization, Other)
  Sender: FDA-Public Use
  Company Number: JP-MSD-M2022-18719

PATIENT
  Age: 54 Year
  Sex: Female

DRUGS (3)
  1. KEYTRUDA [Suspect]
     Active Substance: PEMBROLIZUMAB
     Indication: Uterine cancer
     Dosage: 200 MILLIGRAM, EVERY 4 WEEKS
     Route: 041
     Dates: start: 20220414, end: 20220513
  2. LENVATINIB MESYLATE [Suspect]
     Active Substance: LENVATINIB MESYLATE
     Indication: Uterine cancer
     Dosage: 20 MILLIGRAM, QD
     Route: 048
     Dates: start: 20220414, end: 202204
  3. LENVATINIB MESYLATE [Suspect]
     Active Substance: LENVATINIB MESYLATE
     Dosage: 20 MILLIGRAM, QD
     Route: 048
     Dates: start: 2022, end: 20220503

REACTIONS (8)
  - Malignant neoplasm progression [Unknown]
  - Device related infection [Unknown]
  - Pleural effusion [Recovered/Resolved]
  - Pleural effusion [Unknown]
  - Malaise [Recovered/Resolved]
  - Pyrexia [Unknown]
  - Blood thyroid stimulating hormone increased [Unknown]
  - Off label use [Unknown]

NARRATIVE: CASE EVENT DATE: 20220401
